FAERS Safety Report 24325998 (Version 1)
Quarter: 2024Q3

REPORT INFORMATION
  Report Type: Report from Study
  Country: SA (occurrence: SA)
  Receive Date: 20240917
  Receipt Date: 20240917
  Transmission Date: 20241017
  Serious: Yes (Other)
  Sender: SANDOZ
  Company Number: SA-SANDOZ-SDZ2024SA049607

PATIENT
  Age: 36 Year
  Sex: Female

DRUGS (2)
  1. HYRIMOZ [Suspect]
     Active Substance: ADALIMUMAB-ADAZ
     Indication: Crohn^s disease
     Dosage: 40 MG, Q2W (EVERY14 DAYS)
     Route: 058
     Dates: start: 20240427
  2. HYRIMOZ [Suspect]
     Active Substance: ADALIMUMAB-ADAZ
     Dosage: 40 MG, Q2W (EVERY14 DAYS)
     Route: 058
     Dates: start: 20240427

REACTIONS (8)
  - Eye pruritus [Recovered/Resolved]
  - Burning mouth syndrome [Recovered/Resolved]
  - Hand dermatitis [Recovered/Resolved]
  - Hand dermatitis [Not Recovered/Not Resolved]
  - Cheilitis [Recovering/Resolving]
  - Injection site pain [Not Recovered/Not Resolved]
  - Injection site bruising [Not Recovered/Not Resolved]
  - Contusion [Unknown]

NARRATIVE: CASE EVENT DATE: 20240221
